FAERS Safety Report 7421624-3 (Version None)
Quarter: 2011Q2

REPORT INFORMATION
  Report Type: 
  Country: None (occurrence: None)
  Receive Date: 20110408
  Receipt Date: 20110331
  Transmission Date: 20111010
  Serious: Yes (Death)
  Sender: FDA-Public Use
  Company Number: ABMIR-11-0138

PATIENT
  Sex: Female

DRUGS (7)
  1. ABRAXANE [Suspect]
     Indication: BREAST CANCER METASTATIC
     Dosage: 100 MG/M2;
     Dates: start: 20100728, end: 20101105
  2. ASPIRIN [Concomitant]
  3. ASCORBIC ACID [Concomitant]
  4. DECADRON [Concomitant]
  5. FOLIC ACID [Concomitant]
  6. ADVAIR HFA [Concomitant]
  7. ADVANT [Concomitant]

REACTIONS (1)
  - DEATH [None]
